FAERS Safety Report 6474732-8 (Version None)
Quarter: 2009Q4

REPORT INFORMATION
  Report Type: 
  Country: None (occurrence: None)
  Receive Date: 20091204
  Receipt Date: 20091125
  Transmission Date: 20100525
  Serious: Yes (Other)
  Sender: FDA-Public Use
  Company Number: B0608606A

PATIENT
  Age: 80 Year
  Sex: Female

DRUGS (17)
  1. CEFUROXIME [Suspect]
     Indication: CATARACT OPERATION
     Dates: start: 20080429, end: 20080429
  2. ADRENALINE [Suspect]
     Indication: CATARACT OPERATION
     Dates: start: 20080429, end: 20080429
  3. SODIUM HYALURONATE [Suspect]
     Indication: CATARACT OPERATION
     Dates: start: 20080429, end: 20080429
  4. BALANCED SALT [Suspect]
     Indication: CATARACT OPERATION
     Dates: start: 20080429, end: 20080429
  5. PHENYLEPHRINE [Concomitant]
     Indication: MYDRIASIS
     Route: 047
     Dates: start: 20080429, end: 20080429
  6. CYCLOPENTOLATE HCL [Concomitant]
     Indication: CYCLOPLEGIA
     Route: 047
     Dates: start: 20080429, end: 20080429
  7. VOLTAREN [Concomitant]
     Route: 047
     Dates: start: 20080429, end: 20080429
  8. POVIDONE IODINE [Concomitant]
     Route: 061
     Dates: start: 20080429, end: 20080429
  9. MAXITROL SOLN [Concomitant]
     Indication: MEDICATION DILUTION
     Route: 047
     Dates: start: 20080429
  10. ASPIRIN [Concomitant]
     Dosage: 75MG PER DAY
     Route: 048
  11. CANDESARTAN CILEXETIL [Concomitant]
     Dosage: 8MG PER DAY
     Route: 048
  12. CITALOPRAM HYDROBROMIDE [Concomitant]
     Dosage: 40MG PER DAY
     Route: 048
  13. FEXOFENADINE [Concomitant]
     Dosage: 180MG PER DAY
     Route: 048
  14. FUROSEMIDE [Concomitant]
     Dosage: 20MG PER DAY
     Route: 048
  15. HYDROXYZINE [Concomitant]
     Dosage: 50MG PER DAY
     Route: 048
  16. ISOSORBIDE MONONITRATE [Concomitant]
     Route: 048
  17. LEVOTHYROXINE SODIUM [Concomitant]
     Route: 048

REACTIONS (2)
  - RETINAL INJURY [None]
  - VISUAL ACUITY REDUCED [None]
